FAERS Safety Report 24101670 (Version 1)
Quarter: 2024Q3

REPORT INFORMATION
  Report Type: Spontaneous
  Country: US (occurrence: UM)
  Receive Date: 20240717
  Receipt Date: 20240717
  Transmission Date: 20241017
  Serious: Yes (Hospitalization)
  Sender: ROCHE
  Company Number: UM-ROCHE-3578456

PATIENT
  Age: 43 Year
  Sex: Female
  Weight: 80 kg

DRUGS (1)
  1. OCREVUS [Suspect]
     Active Substance: OCRELIZUMAB
     Indication: Relapsing-remitting multiple sclerosis
     Dosage: 02/OCT/2023
     Route: 065
     Dates: start: 20171101

REACTIONS (2)
  - Organising pneumonia [Recovered/Resolved with Sequelae]
  - COVID-19 [Unknown]

NARRATIVE: CASE EVENT DATE: 20171101
